FAERS Safety Report 9698045 (Version 1)
Quarter: 2013Q4

REPORT INFORMATION
  Report Type: Spontaneous
  Country: CH (occurrence: None)
  Receive Date: 20131118
  Receipt Date: 20131118
  Transmission Date: 20140711
  Serious: Yes (Hospitalization)
  Sender: FDA-Public Use
  Company Number: 20130629

PATIENT
  Age: 67 Year
  Sex: Female

DRUGS (1)
  1. FERINJECT [Suspect]
     Indication: PREOPERATIVE CARE
     Route: 041
     Dates: start: 20131023, end: 20131023

REACTIONS (5)
  - Off label use [None]
  - Back pain [None]
  - Oropharyngeal pain [None]
  - Chest pain [None]
  - Dyspnoea [None]
